FAERS Safety Report 7407098-7 (Version None)
Quarter: 2011Q2

REPORT INFORMATION
  Report Type: 
  Country: None (occurrence: None)
  Receive Date: 20110411
  Receipt Date: 20110330
  Transmission Date: 20111010
  Serious: Yes (Death, Life-Threatening, Hospitalization, Other)
  Sender: FDA-Public Use
  Company Number: CH-BAYER-2011-027251

PATIENT
  Age: 67 Year
  Sex: Female

DRUGS (6)
  1. HEPARIN [Concomitant]
     Indication: ACUTE MYOCARDIAL INFARCTION
     Dosage: DAILY DOSE 25000 U
  2. HEPARIN [Concomitant]
     Indication: EMBOLISM ARTERIAL
     Route: 042
  3. MARCOUMAR [Concomitant]
     Indication: THROMBOSIS PROPHYLAXIS
  4. ACETYLSALICYLIC ACID SRT [Suspect]
     Indication: EMBOLISM ARTERIAL
  5. HEPARIN SODIUM [Concomitant]
     Indication: EMBOLISM ARTERIAL
     Route: 058
  6. PLAVIX [Concomitant]
     Indication: EMBOLISM ARTERIAL

REACTIONS (9)
  - CHEST PAIN [None]
  - BRAIN HERNIATION [None]
  - PUPILS UNEQUAL [None]
  - VASCULAR PSEUDOANEURYSM [None]
  - ACUTE MYOCARDIAL INFARCTION [None]
  - HAEMORRHAGE INTRACRANIAL [None]
  - VOMITING [None]
  - DEPRESSED LEVEL OF CONSCIOUSNESS [None]
  - HEADACHE [None]
